FAERS Safety Report 5117460-3 (Version None)
Quarter: 2006Q3

REPORT INFORMATION
  Report Type: 
  Country: None (occurrence: None)
  Receive Date: 20060929
  Receipt Date: 20060918
  Transmission Date: 20061208
  Serious: Yes (Hospitalization)
  Sender: FDA-Public Use
  Company Number: FR-BRISTOL-MYERS SQUIBB COMPANY-13521216

PATIENT
  Age: 44 Year
  Sex: Male

DRUGS (4)
  1. HOLOXAN [Suspect]
     Indication: GERM CELL CANCER
     Route: 042
     Dates: start: 20060218, end: 20060222
  2. GEMZAR [Suspect]
     Indication: GERM CELL CANCER
     Route: 042
     Dates: start: 20060222, end: 20060222
  3. CISPLATIN [Suspect]
     Indication: GERM CELL CANCER
     Route: 042
     Dates: start: 20060218, end: 20060222
  4. LENOGRASTIM [Concomitant]

REACTIONS (1)
  - FEBRILE BONE MARROW APLASIA [None]
